FAERS Safety Report 19856622 (Version 1)
Quarter: 2021Q3

REPORT INFORMATION
  Report Type: Report from Study
  Country: US (occurrence: US)
  Receive Date: 20210920
  Receipt Date: 20210920
  Transmission Date: 20211014
  Serious: Yes (Other)
  Sender: FDA-Public Use
  Company Number: US-TAKEDA-US201847865

PATIENT
  Sex: Female

DRUGS (1)
  1. CUVITRU [Suspect]
     Active Substance: HUMAN IMMUNOGLOBULIN G
     Indication: IMMUNODEFICIENCY COMMON VARIABLE
     Route: 065

REACTIONS (8)
  - Feeling abnormal [Recovered/Resolved]
  - Anxiety [Unknown]
  - Sinus disorder [Unknown]
  - Abdominal pain [Unknown]
  - Post procedural complication [Unknown]
  - Illness [Unknown]
  - Fall [Unknown]
  - Abdominal discomfort [Unknown]
